FAERS Safety Report 8899760 (Version 2)
Quarter: 2013Q4

REPORT INFORMATION
  Report Type: Spontaneous
  Country: US (occurrence: US)
  Receive Date: 20121109
  Receipt Date: 20131112
  Transmission Date: 20140711
  Serious: Yes (Other)
  Sender: FDA-Public Use
  Company Number: US-BAYER-2012-115269

PATIENT
  Age: 26 Year
  Sex: Female

DRUGS (1)
  1. MIRENA [Suspect]
     Dosage: 20 MCG/24HR, CONT
     Route: 015
     Dates: start: 2010, end: 20131030

REACTIONS (6)
  - Genital haemorrhage [None]
  - Pain [None]
  - Abdominal distension [None]
  - Pregnancy with contraceptive device [None]
  - Drug ineffective [None]
  - Device breakage [None]
